FAERS Safety Report 8487195-8 (Version None)
Quarter: 2012Q3

REPORT INFORMATION
  Report Type: 
  Country: None (occurrence: None)
  Receive Date: 20120705
  Receipt Date: 20120627
  Transmission Date: 20120928
  Serious: Yes (Other)
  Sender: FDA-Public Use
  Company Number: CA-ROCHE-GNE308446

PATIENT
  Sex: Female

DRUGS (2)
  1. XOLAIR [Suspect]
     Indication: ASTHMA
     Dosage: 300 MG, 1/MONTH
     Route: 058
     Dates: start: 20061003
  2. AVELOX [Concomitant]
     Indication: PRODUCT USED FOR UNKNOWN INDICATION
     Dosage: FOR 14 DAYS
     Dates: start: 20120229

REACTIONS (8)
  - BACK PAIN [None]
  - SPINAL COMPRESSION FRACTURE [None]
  - OROPHARYNGEAL PAIN [None]
  - INCREASED UPPER AIRWAY SECRETION [None]
  - BLOOD PRESSURE INCREASED [None]
  - COUGH [None]
  - NASOPHARYNGITIS [None]
  - DYSPNOEA [None]
